FAERS Safety Report 8786450 (Version 2)
Quarter: 2012Q4

REPORT INFORMATION
  Report Type: Report from Study
  Country: ES (occurrence: ES)
  Receive Date: 20120914
  Receipt Date: 20120925
  Transmission Date: 20130627
  Serious: Yes (Hospitalization)
  Sender: FDA-Public Use
  Company Number: ES-PFIZER INC-2012217123

PATIENT
  Age: 67 Year
  Sex: Male
  Weight: 90 kg

DRUGS (5)
  1. TEMSIROLIMUS [Suspect]
     Dosage: 15 mg, day 2 and 16, every 2 hours
     Dates: start: 20120531, end: 20120823
  2. TAXOTERE [Suspect]
     Dosage: 109.54 mg, every 21 days
     Dates: start: 20120530, end: 20120822
  3. PREVENCOR [Concomitant]
     Indication: HYPERCHOLESTEROLAEMIA
     Dosage: UNK
     Route: 048
     Dates: start: 2008
  4. ZOLADEX [Concomitant]
     Indication: PROSTATE CANCER
     Dosage: UNK
     Route: 048
     Dates: start: 2008
  5. SILODIX [Concomitant]
     Indication: POLYURIA
     Dosage: UNK
     Route: 048
     Dates: start: 2011

REACTIONS (1)
  - Febrile neutropenia [Recovered/Resolved]
